FAERS Safety Report 15276073 (Version 1)
Quarter: 2018Q3

REPORT INFORMATION
  Report Type: Spontaneous
  Country: US (occurrence: US)
  Receive Date: 20180727
  Receipt Date: 20180727
  Transmission Date: 20181010
  Serious: No
  Sender: FDA-Public Use
  Company Number: None

PATIENT
  Age: 94 Year
  Sex: Male

DRUGS (2)
  1. HEPARIN [Suspect]
     Active Substance: HEPARIN SODIUM
     Indication: ACUTE MYOCARDIAL INFARCTION
     Dosage: ?          OTHER FREQUENCY:CONTINUOUS;?
     Route: 042
     Dates: start: 20180420, end: 20180420
  2. SIMVASTATIN. [Concomitant]
     Active Substance: SIMVASTATIN

REACTIONS (4)
  - Pericardial effusion [None]
  - Coronary artery aneurysm [None]
  - Cardiac tamponade [None]
  - Hypotension [None]

NARRATIVE: CASE EVENT DATE: 20180421
